FAERS Safety Report 6859232-5 (Version None)
Quarter: 2010Q3

REPORT INFORMATION
  Report Type: 
  Country: None (occurrence: None)
  Receive Date: 20100719
  Receipt Date: 20080223
  Transmission Date: 20110219
  Serious: No
  Sender: FDA-Public Use
  Company Number: US-PFIZER INC-2008018350

PATIENT
  Sex: Female
  Weight: 70.8 kg

DRUGS (5)
  1. CHANTIX [Suspect]
     Indication: SMOKING CESSATION THERAPY
     Dates: start: 20080101
  2. FRUSEMIDE [Concomitant]
  3. XANAX [Concomitant]
  4. NEURONTIN [Concomitant]
  5. MS CONTIN [Concomitant]

REACTIONS (4)
  - DRUG DOSE OMISSION [None]
  - DYSPNOEA [None]
  - IRRITABILITY [None]
  - MOOD SWINGS [None]
